FAERS Safety Report 4399895-X (Version None)
Quarter: 2004Q3

REPORT INFORMATION
  Report Type: 
  Country: None (occurrence: None)
  Receive Date: 20040716
  Receipt Date: 20040630
  Transmission Date: 20050211
  Serious: Yes (Congenital Anomaly)
  Sender: FDA-Public Use
  Company Number: 04P-020-0265662-00

PATIENT
  Age: 42 Year
  Sex: Female
  Weight: 64 kg

DRUGS (2)
  1. IBERIN FOLICO TABLETS (FERROUS SULFATE/FOLIC ACID/ASCORBIC ACID) (FERR [Suspect]
     Indication: VITAMIN SUPPLEMENTATION
     Dosage: 1 TABLET, 1 IN  1 D, PER ORAL
     Route: 048
     Dates: start: 20040607
  2. PURAN [Concomitant]

REACTIONS (2)
  - DRUG EXPOSURE DURING PREGNANCY [None]
  - FOETAL GROWTH RETARDATION [None]
